FAERS Safety Report 18757726 (Version 1)
Quarter: 2021Q1

REPORT INFORMATION
  Report Type: Spontaneous
  Country: US (occurrence: US)
  Receive Date: 20210119
  Receipt Date: 20210119
  Transmission Date: 20210419
  Serious: Yes (Hospitalization)
  Sender: FDA-Public Use
  Company Number: US-SA-2021SA013615

PATIENT
  Sex: Female

DRUGS (4)
  1. TRIKAFTA [Concomitant]
     Active Substance: ELEXACAFTOR\IVACAFTOR\TEZACAFTOR
     Dosage: UNK UNK, QOW
  2. TOBI [Concomitant]
     Active Substance: TOBRAMYCIN
     Dosage: UNK UNK, QOW
  3. DUPIXENT [Suspect]
     Active Substance: DUPILUMAB
     Indication: EATING DISORDER
     Dosage: 300 MG, QOW (SUSPENSION FOR INJECTION, STRENGTH: 150MG/ML)
     Route: 058
  4. PULMOZYME [Concomitant]
     Active Substance: DORNASE ALFA
     Dosage: UNK UNK, QOW

REACTIONS (2)
  - Product use in unapproved indication [Unknown]
  - Vocal cord dysfunction [Unknown]
